FAERS Safety Report 16324818 (Version 10)
Quarter: 2020Q4

REPORT INFORMATION
  Report Type: Spontaneous
  Country: FR (occurrence: FR)
  Receive Date: 20190517
  Receipt Date: 20201108
  Transmission Date: 20210113
  Serious: Yes (Other)
  Sender: FDA-Public Use
  Company Number: PHHY2019FR107992

PATIENT

DRUGS (22)
  1. TOBRADEX [Suspect]
     Active Substance: DEXAMETHASONE\TOBRAMYCIN
     Dosage: 1 DRP, QD
     Route: 047
     Dates: start: 20190502
  2. MYDRIATICUM [Suspect]
     Active Substance: TROPICAMIDE
     Dosage: 1 DRP, QD (STOPPED ON 13/APR/2019 ONLY FOR THE RIGHT EYE)
     Route: 047
     Dates: start: 20190313, end: 20190416
  3. VITAMINE A FAURE [Suspect]
     Active Substance: RETINOL
     Indication: PRODUCT USED FOR UNKNOWN INDICATION
     Dosage: 2 DRP, QD (DAILY DOSE OF 4 DROPS IN BOTH EYES)
     Route: 047
     Dates: start: 20190502
  4. SYSTANE BALANCE [Suspect]
     Active Substance: PROPYLENE GLYCOL
     Indication: PRODUCT USED FOR UNKNOWN INDICATION
     Dosage: 2 DRP, QD (1 DROP IN BOTH EYES)
     Route: 065
     Dates: start: 20190516
  5. TOBREX [Suspect]
     Active Substance: TOBRAMYCIN
     Indication: PRODUCT USED FOR UNKNOWN INDICATION
     Dosage: UNK
     Route: 065
     Dates: start: 20190421, end: 20190502
  6. VISMED [Suspect]
     Active Substance: HYALURONATE SODIUM
     Indication: EYE INFLAMMATION
     Dosage: UNK UNK, QD (STERILE SOLUTION FOR TOPICAL OPHTHALMIC USE; FOR 5 DAYS)
     Route: 047
     Dates: end: 20190416
  7. DACUDOSES [Suspect]
     Active Substance: BORIC ACID\SODIUM BORATE
     Indication: POSTOPERATIVE CARE
     Dosage: UNK
     Route: 047
     Dates: start: 20190313
  8. INDOCOLLYRE [Suspect]
     Active Substance: INDOMETHACIN
     Indication: PREOPERATIVE CARE
     Dosage: 1 GTT, QD
     Route: 047
     Dates: start: 201904, end: 20190502
  9. THEALOSE [Suspect]
     Active Substance: HYALURONATE SODIUM\TREHALOSE
     Indication: PRODUCT USED FOR UNKNOWN INDICATION
     Dosage: 2 DRP, QD (ONCE AT BEDTIME)
     Route: 065
     Dates: start: 20190516
  10. INSULIN [Concomitant]
     Active Substance: INSULIN NOS
     Indication: PRODUCT USED FOR UNKNOWN INDICATION
     Dosage: UNK
     Route: 065
  11. VITAMIN A [RETINOL] [Suspect]
     Active Substance: RETINOL
     Indication: PRODUCT USED FOR UNKNOWN INDICATION
     Dosage: UNK
     Route: 065
  12. REFRESH CELLUVISC [Suspect]
     Active Substance: CARBOXYMETHYLCELLULOSE SODIUM
     Indication: POSTOPERATIVE CARE
     Dosage: UNK (IN THE EVENING, RESTARTED)
     Route: 047
     Dates: start: 20190413, end: 20190416
  13. VISMED [Suspect]
     Active Substance: HYALURONATE SODIUM
     Indication: OCULAR HYPERTENSION
     Dosage: UNK (STERILE SOLUTION FOR TOPICAL OPHTHALMIC USE; FOR 5 DAYS)
     Route: 047
     Dates: start: 2019, end: 20190416
  14. TOBRADEX [Suspect]
     Active Substance: DEXAMETHASONE\TOBRAMYCIN
     Dosage: 1 DRP, QD (PRESCRIBED FOR 8 DAYS; 1 DROP 2 TIMES PER DAY)
     Route: 047
     Dates: start: 20190313, end: 20190416
  15. LACRYVISC [Suspect]
     Active Substance: CARBOMER
     Indication: PRODUCT USED FOR UNKNOWN INDICATION
     Dosage: ONCE AT BEDTIME
     Route: 065
     Dates: start: 20190516
  16. VITAMIN B12 [Suspect]
     Active Substance: CYANOCOBALAMIN
     Indication: POSTOPERATIVE CARE
     Dosage: IN SINGLE DOSE UNITS
     Route: 047
     Dates: start: 20190413, end: 20190416
  17. MYDRIATICUM [Suspect]
     Active Substance: TROPICAMIDE
     Indication: POSTOPERATIVE CARE
     Dosage: 1 DRP, QD
     Route: 047
     Dates: start: 20190313, end: 20190416
  18. VITABACT [Suspect]
     Active Substance: PICLOXYDINE DIHYDROCHLORIDE
     Indication: POSTOPERATIVE CARE
     Dosage: UNK, QD
     Route: 047
     Dates: start: 20190310, end: 20190312
  19. VISMED [Suspect]
     Active Substance: HYALURONATE SODIUM
     Indication: EYE PAIN
  20. TOBRADEX [Suspect]
     Active Substance: DEXAMETHASONE\TOBRAMYCIN
     Indication: POSTOPERATIVE CARE
     Dosage: 1 GTT, QD (STOPPED ON 13 APR 2019 ONLY FOR THE RIGHT EYE)
     Route: 047
     Dates: start: 20190313, end: 20190416
  21. ODM 5 [Suspect]
     Active Substance: HYALURONATE SODIUM\SODIUM CHLORIDE
     Indication: EYE OEDEMA
     Dosage: USE IN LEFT EYE
     Route: 047
     Dates: start: 20190410, end: 20190416
  22. INDOCOLLYRE [Suspect]
     Active Substance: INDOMETHACIN
     Dosage: 1 GTT, QD
     Route: 047
     Dates: start: 20190310, end: 20190413

REACTIONS (10)
  - Photophobia [Not Recovered/Not Resolved]
  - Foreign body sensation in eyes [Not Recovered/Not Resolved]
  - Sinusitis [Unknown]
  - Eye oedema [Unknown]
  - Ocular hypertension [Unknown]
  - Eye inflammation [Unknown]
  - Eye irritation [Not Recovered/Not Resolved]
  - Eye pain [Not Recovered/Not Resolved]
  - Keratitis [Recovered/Resolved]
  - Off label use [Unknown]

NARRATIVE: CASE EVENT DATE: 2019
